FAERS Safety Report 6960546-9 (Version None)
Quarter: 2010Q3

REPORT INFORMATION
  Report Type: 
  Country: None (occurrence: None)
  Receive Date: 20100826
  Receipt Date: 20100808
  Transmission Date: 20110219
  Serious: Yes (Other)
  Sender: FDA-Public Use
  Company Number: 2010SP042644

PATIENT
  Age: 24 Year
  Sex: Male
  Weight: 32 kg

DRUGS (1)
  1. DIPROSPAN (BETAMETHASONE SODIUM PHOSPHATE/DIPROPIONATE) (BETAMETHASONE [Suspect]
     Indication: KELOID SCAR
     Dosage: ; ONCE
     Dates: start: 20100708, end: 20100708

REACTIONS (3)
  - ANAPHYLACTOID REACTION [None]
  - CYANOSIS [None]
  - DIZZINESS [None]
